FAERS Safety Report 20331042 (Version 2)
Quarter: 2022Q1

REPORT INFORMATION
  Report Type: Spontaneous
  Country: TR (occurrence: TR)
  Receive Date: 20220113
  Receipt Date: 20220128
  Transmission Date: 20220424
  Serious: Yes (Other)
  Sender: FDA-Public Use
  Company Number: TR-JNJFOC-20220113257

PATIENT
  Sex: Male

DRUGS (1)
  1. REMICADE [Suspect]
     Active Substance: INFLIXIMAB
     Indication: Axial spondyloarthritis
     Route: 042

REACTIONS (5)
  - Dementia Alzheimer^s type [Unknown]
  - Intracranial aneurysm [Unknown]
  - Drug-induced liver injury [Unknown]
  - Pulmonary tuberculosis [Unknown]
  - Cutaneous T-cell lymphoma [Unknown]
